FAERS Safety Report 11795628 (Version 1)
Quarter: 2015Q4

REPORT INFORMATION
  Report Type: Spontaneous
  Country: MX (occurrence: MX)
  Receive Date: 20151202
  Receipt Date: 20151202
  Transmission Date: 20160305
  Serious: Yes (Other)
  Sender: FDA-Public Use
  Company Number: MX-009507513-1009USA05582

PATIENT
  Age: 65 Year
  Sex: Female

DRUGS (5)
  1. BACTRIM DS [Concomitant]
     Active Substance: SULFAMETHOXAZOLE\TRIMETHOPRIM
     Indication: INFECTION
     Dates: start: 20100105
  2. AVELOX [Concomitant]
     Active Substance: MOXIFLOXACIN HYDROCHLORIDE
     Indication: INFECTION
     Dates: start: 20100105
  3. TARGOCID [Concomitant]
     Active Substance: TEICOPLANIN
     Indication: INFECTION
     Dates: start: 20100105
  4. AMOXICILLIN. [Concomitant]
     Active Substance: AMOXICILLIN
     Indication: INFECTION
     Dosage: 875 MG, TID
     Route: 042
     Dates: start: 20100727
  5. MK-3009 [Suspect]
     Active Substance: DAPTOMYCIN
     Indication: INFECTION
     Dosage: 500 MG, QD
     Route: 042
     Dates: start: 20100727

REACTIONS (3)
  - Enterococcal infection [Unknown]
  - Pain in extremity [Unknown]
  - Off label use [Unknown]
